FAERS Safety Report 15969028 (Version 5)
Quarter: 2021Q3

REPORT INFORMATION
  Report Type: Spontaneous
  Country: US (occurrence: US)
  Receive Date: 20190215
  Receipt Date: 20210806
  Transmission Date: 20211014
  Serious: Yes (Hospitalization, Other)
  Sender: FDA-Public Use
  Company Number: US-ASTRAZENECA-2018SF15089

PATIENT
  Age: 27762 Day
  Sex: Male
  Weight: 95.3 kg

DRUGS (48)
  1. PROTONIX [Suspect]
     Active Substance: PANTOPRAZOLE SODIUM
     Indication: GASTROOESOPHAGEAL REFLUX DISEASE
     Route: 065
  2. PROTONIX [Suspect]
     Active Substance: PANTOPRAZOLE SODIUM
     Indication: GASTROOESOPHAGEAL REFLUX DISEASE
     Route: 065
     Dates: start: 20080601, end: 20160630
  3. ZYRTEC [Concomitant]
     Active Substance: CETIRIZINE HYDROCHLORIDE
     Route: 048
  4. SIMVASTATIN. [Concomitant]
     Active Substance: SIMVASTATIN
     Route: 048
  5. SIMCOR [Concomitant]
     Active Substance: NIACIN\SIMVASTATIN
     Dates: start: 201402
  6. ADVAIR DISKUS [Concomitant]
     Active Substance: FLUTICASONE PROPIONATE\SALMETEROL XINAFOATE
  7. FERROUS GLUCONATE [Concomitant]
     Active Substance: FERROUS GLUCONATE
  8. METFORMIN [Concomitant]
     Active Substance: METFORMIN HYDROCHLORIDE
  9. PREDNISONE. [Concomitant]
     Active Substance: PREDNISONE
  10. ACTOS [Concomitant]
     Active Substance: PIOGLITAZONE HYDROCHLORIDE
     Route: 048
  11. ALLOPURINOL. [Concomitant]
     Active Substance: ALLOPURINOL
     Indication: URINARY TRACT INFECTION
     Route: 048
  12. ALLOPURINOL. [Concomitant]
     Active Substance: ALLOPURINOL
     Indication: URINARY TRACT INFECTION
     Dates: start: 2017
  13. GLUCOTROL [Concomitant]
     Active Substance: GLIPIZIDE
     Indication: DIABETES MELLITUS
     Dates: start: 201402
  14. ZOLPIDEM TARTRATE. [Concomitant]
     Active Substance: ZOLPIDEM TARTRATE
  15. AUGMENTIN [Concomitant]
     Active Substance: AMOXICILLIN\CLAVULANATE POTASSIUM
  16. ALLOPURINOL. [Concomitant]
     Active Substance: ALLOPURINOL
  17. CEFDINIR. [Concomitant]
     Active Substance: CEFDINIR
  18. NEXIUM [Suspect]
     Active Substance: ESOMEPRAZOLE MAGNESIUM
     Indication: GASTROOESOPHAGEAL REFLUX DISEASE
     Route: 048
     Dates: start: 20080601, end: 20160630
  19. PLAVIX [Concomitant]
     Active Substance: CLOPIDOGREL BISULFATE
     Route: 048
  20. TACLONEX [Concomitant]
     Active Substance: BETAMETHASONE DIPROPIONATE\CALCIPOTRIENE\CALCIPOTRIENE HYDRATE
  21. NEXIUM [Suspect]
     Active Substance: ESOMEPRAZOLE MAGNESIUM
     Indication: GASTROOESOPHAGEAL REFLUX DISEASE
     Route: 048
     Dates: start: 20140728
  22. CLONAZEPAM. [Concomitant]
     Active Substance: CLONAZEPAM
     Route: 048
  23. LISINOPRIL. [Concomitant]
     Active Substance: LISINOPRIL
     Route: 048
  24. CALCITRIOL. [Concomitant]
     Active Substance: CALCITRIOL
     Dates: start: 201402
  25. ZOSTAVAX [Concomitant]
     Active Substance: VARICELLA-ZOSTER VIRUS STRAIN OKA/MERCK LIVE ANTIGEN
     Dates: start: 201402
  26. TAMSULOSIN [Concomitant]
     Active Substance: TAMSULOSIN
  27. SOTALOL. [Concomitant]
     Active Substance: SOTALOL
  28. ALLEGRA [Concomitant]
     Active Substance: FEXOFENADINE HYDROCHLORIDE
     Route: 048
  29. LEUCINE/CHROMIUM/NICOTINAMIDE/VALINE/BIOTIN/PHENYLALANINE/CYANOCOBALAMIN/HISTIDINE/ARGININE/METHIONI [Concomitant]
     Dates: start: 201402
  30. ASACOL [Concomitant]
     Active Substance: MESALAMINE
     Dates: start: 201402
  31. NOVOLOG [Concomitant]
     Active Substance: INSULIN ASPART
  32. PHENERGAN [Concomitant]
     Active Substance: PROMETHAZINE HYDROCHLORIDE
     Indication: NAUSEA
  33. HYDROCHLOROTHIAZIDE. [Concomitant]
     Active Substance: HYDROCHLOROTHIAZIDE
     Route: 048
  34. NOVOLIN NOS [Concomitant]
     Active Substance: INSULIN HUMAN
  35. LEVAQUIN [Concomitant]
     Active Substance: LEVOFLOXACIN
  36. METHYLPREDNISOLONE. [Concomitant]
     Active Substance: METHYLPREDNISOLONE
  37. NEXIUM [Suspect]
     Active Substance: ESOMEPRAZOLE MAGNESIUM
     Indication: GASTROOESOPHAGEAL REFLUX DISEASE
     Route: 048
  38. NEXIUM [Suspect]
     Active Substance: ESOMEPRAZOLE MAGNESIUM
     Indication: GASTROOESOPHAGEAL REFLUX DISEASE
     Route: 048
     Dates: start: 20080601, end: 20160601
  39. PROTONIX [Suspect]
     Active Substance: PANTOPRAZOLE SODIUM
     Indication: GASTROOESOPHAGEAL REFLUX DISEASE
     Route: 065
     Dates: start: 20140904
  40. POTASSIUM CITRATE. [Concomitant]
     Active Substance: POTASSIUM CITRATE
  41. LEVOTHYROXINE. [Concomitant]
     Active Substance: LEVOTHYROXINE
  42. ASPIRIN. [Concomitant]
     Active Substance: ASPIRIN
     Route: 048
  43. CELEBREX [Concomitant]
     Active Substance: CELECOXIB
     Route: 048
  44. ASTELIN [Concomitant]
     Active Substance: AZELASTINE HYDROCHLORIDE
     Dates: start: 201402
  45. CORTIFOAM [Concomitant]
     Active Substance: HYDROCORTISONE ACETATE
     Dates: start: 201402
  46. METOPROLOL. [Concomitant]
     Active Substance: METOPROLOL
  47. LIPITOR [Concomitant]
     Active Substance: ATORVASTATIN CALCIUM
  48. SIMVASTATIN. [Concomitant]
     Active Substance: SIMVASTATIN

REACTIONS (7)
  - Hyperparathyroidism secondary [Unknown]
  - Acute kidney injury [Not Recovered/Not Resolved]
  - Chronic kidney disease [Not Recovered/Not Resolved]
  - Renal injury [Unknown]
  - Renal failure [Unknown]
  - Tubulointerstitial nephritis [Unknown]
  - Metabolic acidosis [Unknown]

NARRATIVE: CASE EVENT DATE: 20120409
